FAERS Safety Report 5736357-9 (Version None)
Quarter: 2008Q2

REPORT INFORMATION
  Report Type: 
  Country: None (occurrence: None)
  Receive Date: 20080506
  Receipt Date: 20070829
  Transmission Date: 20081010
  Serious: Yes (Death)
  Sender: FDA-Public Use
  Company Number: T200701007

PATIENT
  Age: 26 Year
  Sex: Male

DRUGS (5)
  1. METHADOSE [Suspect]
  2. XANAX [Suspect]
  3. COCAINE(COCAINE) [Suspect]
  4. CODEINE SUL TAB [Suspect]
  5. ETHANOL(ETHNOL) [Suspect]

REACTIONS (2)
  - HEART RATE IRREGULAR [None]
  - RESPIRATORY ARREST [None]
